FAERS Safety Report 9424704 (Version 1)
Quarter: 2013Q3

REPORT INFORMATION
  Report Type: Report from Study
  Country: US (occurrence: US)
  Receive Date: 20130729
  Receipt Date: 20130729
  Transmission Date: 20140515
  Serious: Yes (Other)
  Sender: FDA-Public Use
  Company Number: US-BAYER-2013-090972

PATIENT
  Age: 78 Year
  Sex: Male
  Weight: 86.18 kg

DRUGS (14)
  1. XARELTO [Suspect]
     Indication: CEREBROVASCULAR ACCIDENT PROPHYLAXIS
     Dosage: UNK
     Dates: start: 201210, end: 201301
  2. XARELTO [Suspect]
     Indication: ATRIAL FIBRILLATION
     Dosage: 15 MG, QD
     Route: 048
     Dates: start: 201307
  3. SYNTHROID [Concomitant]
     Indication: THYROID DISORDER
     Dosage: .1 MG, QD
     Route: 048
  4. SIMVASTATIN [Concomitant]
     Indication: BLOOD CHOLESTEROL ABNORMAL
     Dosage: 20 MG, QD
     Route: 048
  5. TRIAMTERENE [Concomitant]
     Indication: BLOOD PRESSURE ABNORMAL
     Dosage: 37.5 MG, QD
     Route: 048
  6. VITAMIN D [Concomitant]
     Dosage: 3000 MG, BID
     Route: 048
  7. METOPROLOL [Concomitant]
     Indication: BLOOD PRESSURE ABNORMAL
     Dosage: 50 MG, QD
     Route: 048
  8. DRONEDARONE [Concomitant]
     Indication: ATRIAL FIBRILLATION
     Dosage: 400 MG, BID
     Route: 048
  9. TAMSULOSIN [Concomitant]
     Indication: BENIGN PROSTATIC HYPERPLASIA
     Dosage: .4 MG, QD
     Route: 048
  10. LOSARTAN [Concomitant]
     Dosage: 25 MG, BID
     Route: 048
  11. LORAZEPAM [Concomitant]
     Dosage: 1 MG, UNK
     Route: 048
  12. REQUIP [Concomitant]
     Indication: RESTLESS LEGS SYNDROME
     Route: 065
  13. VITAMIN C [Concomitant]
     Route: 065
  14. ACETYLSALICYLIC ACID({=100 MG) [Suspect]
     Indication: ANTICOAGULANT THERAPY
     Dosage: 81 MG, QD
     Route: 048
     Dates: end: 20130714

REACTIONS (2)
  - Blood urine present [Recovered/Resolved]
  - Haemoptysis [Unknown]
